FAERS Safety Report 9230976 (Version 2)
Quarter: 2013Q4

REPORT INFORMATION
  Report Type: Report from Study
  Country: JP (occurrence: JP)
  Receive Date: 20130415
  Receipt Date: 20131126
  Transmission Date: 20140711
  Serious: Yes (Other)
  Sender: FDA-Public Use
  Company Number: JP-ROCHE-1211164

PATIENT
  Age: 69 Year
  Sex: Male

DRUGS (8)
  1. METHOXY POLYETHYLENE GLYCOL-EPOETIN BETA [Suspect]
     Indication: NEPHROGENIC ANAEMIA
     Route: 042
     Dates: start: 20120220
  2. ARGAMATE [Concomitant]
     Route: 048
  3. CARDENALIN [Concomitant]
     Route: 048
  4. ATELEC [Concomitant]
     Route: 048
  5. OLMETEC [Concomitant]
     Route: 048
  6. MIYA BM [Concomitant]
     Route: 048
  7. MAGMITT [Concomitant]
     Route: 048
  8. BROTIZOLAM [Concomitant]
     Route: 048

REACTIONS (1)
  - Arteriovenous shunt operation [Unknown]
